FAERS Safety Report 6697811-9 (Version None)
Quarter: 2010Q2

REPORT INFORMATION
  Report Type: 
  Country: None (occurrence: None)
  Receive Date: 20100423
  Receipt Date: 20100413
  Transmission Date: 20101027
  Serious: Yes (Death, Other)
  Sender: FDA-Public Use
  Company Number: 2010AL001487

PATIENT
  Sex: Male

DRUGS (2)
  1. PHENOBARBITAL TAB [Suspect]
     Indication: DRUG USE FOR UNKNOWN INDICATION
  2. MIDAZOLAM HCL [Concomitant]

REACTIONS (5)
  - AGGRESSION [None]
  - DISEASE PROGRESSION [None]
  - DRUG EFFECT DECREASED [None]
  - PRODUCT PACKAGING QUANTITY ISSUE [None]
  - PRODUCT TAMPERING [None]
